FAERS Safety Report 7998749 (Version 4)
Quarter: 2016Q1

REPORT INFORMATION
  Report Type: Spontaneous
  Country: DE (occurrence: DE)
  Receive Date: 20110621
  Receipt Date: 20160125
  Transmission Date: 20160526
  Serious: Yes (Hospitalization, Other)
  Sender: FDA-Public Use
  Company Number: DE-BRISTOL-MYERS SQUIBB COMPANY-15679715

PATIENT
  Age: 22 Year
  Sex: Female
  Weight: 115 kg

DRUGS (3)
  1. ABILIFY [Suspect]
     Active Substance: ARIPIPRAZOLE
     Indication: SCHIZOAFFECTIVE DISORDER
     Dosage: 5 MG, QD
     Route: 048
     Dates: start: 200906, end: 20110407
  2. ANTIBIOTICS [Suspect]
     Active Substance: UNSPECIFIED INGREDIENT
     Indication: BRONCHITIS
     Dosage: UNK
     Route: 065
     Dates: start: 201102, end: 201103
  3. CETRIZINE [Suspect]
     Active Substance: CETIRIZINE HYDROCHLORIDE
     Indication: SEASONAL ALLERGY
     Dosage: UNK
     Route: 065
     Dates: start: 201103, end: 20110407

REACTIONS (9)
  - Vaginal haemorrhage [Recovered/Resolved]
  - Gestational diabetes [Unknown]
  - Exposure via body fluid [Unknown]
  - Normal newborn [Unknown]
  - Constipation [Unknown]
  - Oedema [Unknown]
  - Genital rash [Unknown]
  - Maternal exposure during pregnancy [Recovered/Resolved]
  - Streptococcus test positive [Unknown]

NARRATIVE: CASE EVENT DATE: 2011
